FAERS Safety Report 9514001 (Version 6)
Quarter: 2013Q4

REPORT INFORMATION
  Report Type: Spontaneous
  Country: FR (occurrence: FR)
  Receive Date: 20130910
  Receipt Date: 20131028
  Transmission Date: 20140711
  Serious: Yes (Other)
  Sender: FDA-Public Use
  Company Number: FR-PFIZER INC-2013242462

PATIENT
  Age: 47 Year
  Sex: Female

DRUGS (5)
  1. XALATAN [Suspect]
     Indication: GLAUCOMA
     Dosage: UNK
     Route: 047
     Dates: start: 2011
  2. XALATAN [Suspect]
     Indication: INTRAOCULAR PRESSURE INCREASED
     Dosage: 1 DF, 1X/DAY
     Dates: start: 20130312
  3. XALATAN [Suspect]
     Dosage: 1 DF, 1X/DAY
     Route: 031
     Dates: start: 20130812, end: 20130814
  4. XALATAN [Suspect]
     Dosage: 1 DF, 1X/DAY
     Route: 031
     Dates: start: 20130815
  5. XALATAN [Suspect]
     Dosage: 1 DF, 1X/DAY
     Dates: end: 20130821

REACTIONS (8)
  - Headache [Recovered/Resolved]
  - Vomiting [Recovered/Resolved]
  - Balance disorder [Recovered/Resolved]
  - Eye pain [Recovered/Resolved]
  - Arrhythmia [Recovered/Resolved]
  - Nausea [Recovered/Resolved]
  - Eye allergy [Unknown]
  - Conjunctival irritation [Recovered/Resolved]
